FAERS Safety Report 20518934 (Version 1)
Quarter: 2022Q1

REPORT INFORMATION
  Report Type: Spontaneous
  Country: JP (occurrence: JP)
  Receive Date: 20220225
  Receipt Date: 20220225
  Transmission Date: 20220424
  Serious: Yes (Other)
  Sender: FDA-Public Use
  Company Number: JP-NORTHSTAR HEALTHCARE HOLDINGS-JP-2022NSR000020

PATIENT
  Age: 31 Year
  Sex: Female

DRUGS (2)
  1. BACLOFEN [Suspect]
     Active Substance: BACLOFEN
     Indication: Muscle spasticity
     Dosage: 170 ?G, QD, TOTAL DAILY DOSE
     Route: 050
  2. BACLOFEN [Suspect]
     Active Substance: BACLOFEN
     Dosage: 50 ?G
     Route: 050

REACTIONS (3)
  - Leukoencephalopathy [Recovered/Resolved]
  - Withdrawal syndrome [Recovered/Resolved]
  - Blood pressure increased [Recovered/Resolved]
